FAERS Safety Report 13330627 (Version 1)
Quarter: 2017Q1

REPORT INFORMATION
  Report Type: Spontaneous
  Country: US (occurrence: US)
  Receive Date: 20170314
  Receipt Date: 20170314
  Transmission Date: 20170428
  Serious: No
  Sender: FDA-Public Use
  Company Number: US-TEVA-740528ACC

PATIENT
  Sex: Male

DRUGS (1)
  1. ALPRAZOLAM ORAL DISPENSING TABLET [Suspect]
     Active Substance: ALPRAZOLAM
     Indication: ANXIETY
     Dates: start: 2017

REACTIONS (3)
  - Drug ineffective [Unknown]
  - Palpitations [Unknown]
  - Anxiety [Unknown]
